FAERS Safety Report 5077097-1 (Version None)
Quarter: 2006Q3

REPORT INFORMATION
  Report Type: 
  Country: None (occurrence: None)
  Receive Date: 20060810
  Receipt Date: 20051212
  Transmission Date: 20061208
  Serious: Yes (Other)
  Sender: FDA-Public Use
  Company Number: US-GLAXOSMITHKLINE-A0585487A

PATIENT
  Age: 62 Year
  Sex: Female
  Weight: 59.1 kg

DRUGS (4)
  1. PAROXETINE HCL [Suspect]
  2. PAXIL [Suspect]
     Dosage: 25MG PER DAY
     Route: 048
  3. LIPITOR [Concomitant]
  4. PAROXETINE HCL [Concomitant]

REACTIONS (1)
  - LOSS OF CONSCIOUSNESS [None]
